FAERS Safety Report 13137509 (Version 1)
Quarter: 2017Q1

REPORT INFORMATION
  Report Type: Spontaneous
  Country: US (occurrence: US)
  Receive Date: 20170123
  Receipt Date: 20170123
  Transmission Date: 20170428
  Serious: No
  Sender: FDA-Public Use
  Company Number: US-BAYER-2017-012273

PATIENT
  Age: 9 Year
  Sex: Male

DRUGS (4)
  1. KETOTIFEN FUMARATE. [Concomitant]
     Active Substance: KETOTIFEN FUMARATE
  2. FLINTSTONES PLUS IMMUNITY SUPPORT CHEWABLE [Concomitant]
     Active Substance: VITAMINS
     Dosage: UNK
  3. CLARITIN-D 24 HOUR [Suspect]
     Active Substance: LORATADINE\PSEUDOEPHEDRINE SULFATE
     Indication: ASTHMA
     Dosage: 1 DF, UNK
     Route: 048
     Dates: start: 201603
  4. FLONASE [Concomitant]
     Active Substance: FLUTICASONE PROPIONATE
     Dosage: UNK

REACTIONS (1)
  - Off label use [Unknown]
